FAERS Safety Report 8013590-7 (Version None)
Quarter: 2011Q4

REPORT INFORMATION
  Report Type: 
  Country: None (occurrence: None)
  Receive Date: 20111229
  Receipt Date: 20111222
  Transmission Date: 20120403
  Serious: No
  Sender: FDA-Public Use
  Company Number: US-B.I. PHARMACEUTICALS,INC./RIDGEFIELD-2011-BP-28653BP

PATIENT
  Sex: Female

DRUGS (6)
  1. QUINAPRIL [Concomitant]
     Indication: HYPERTENSION
     Route: 048
  2. COMBIVENT [Suspect]
     Indication: ASTHMA
     Route: 055
     Dates: start: 20070901
  3. VERAPAMIL [Concomitant]
     Indication: HYPERTENSION
     Route: 048
  4. IPRATROPIUM BROMIDE [Concomitant]
     Indication: ASTHMA
     Route: 055
  5. XOPANEX [Concomitant]
     Indication: ASTHMA
     Route: 055
  6. LEVOTHYROXINE SODIUM [Concomitant]
     Indication: HYPOTHYROIDISM
     Route: 048

REACTIONS (4)
  - INTENTIONAL DRUG MISUSE [None]
  - FEELING ABNORMAL [None]
  - DRUG INEFFECTIVE [None]
  - DYSPNOEA [None]
